FAERS Safety Report 13993963 (Version 2)
Quarter: 2017Q4

REPORT INFORMATION
  Report Type: Spontaneous
  Country: FR (occurrence: FR)
  Receive Date: 20170916
  Receipt Date: 20171102
  Transmission Date: 20180321
  Serious: Yes (Other)
  Sender: FDA-Public Use
  Company Number: FR-MERCK KGAA-2026554

PATIENT
  Sex: Male

DRUGS (1)
  1. NOVOTHYROX [Suspect]
     Active Substance: LEVOTHYROXINE SODIUM
     Indication: THYROID CANCER
     Route: 048
     Dates: start: 2017

REACTIONS (5)
  - Dizziness [None]
  - Muscle spasms [None]
  - Vomiting [None]
  - Somnolence [None]
  - Pain in extremity [None]

NARRATIVE: CASE EVENT DATE: 2017
